FAERS Safety Report 6617842-4 (Version None)
Quarter: 2010Q1

REPORT INFORMATION
  Report Type: 
  Country: None (occurrence: None)
  Receive Date: 20100308
  Receipt Date: 20100304
  Transmission Date: 20100710
  Serious: Yes (Death)
  Sender: FDA-Public Use
  Company Number: PHEH2009US17164

PATIENT
  Sex: Male

DRUGS (6)
  1. EXJADE [Suspect]
     Indication: SICKLE CELL ANAEMIA
     Dosage: 1750 MG, DAILY
     Route: 048
  2. PHENOTHIAZINE [Concomitant]
  3. TRICYCLIC ANTIDEPRESSANTS [Concomitant]
  4. THEOPHYLLINE [Concomitant]
  5. ANTIHISTAMINES [Concomitant]
  6. ANTIARRHYTHMICS, CLASS I AND III [Concomitant]

REACTIONS (1)
  - DEATH [None]
